FAERS Safety Report 18992263 (Version 1)
Quarter: 2021Q1

REPORT INFORMATION
  Report Type: Spontaneous
  Country: US (occurrence: US)
  Receive Date: 20210310
  Receipt Date: 20210310
  Transmission Date: 20210420
  Serious: Yes (Death, Hospitalization)
  Sender: FDA-Public Use
  Company Number: US-PFIZER INC-2021249114

PATIENT
  Age: 71 Year
  Sex: Male
  Weight: 90.72 kg

DRUGS (1)
  1. HEPARIN SODIUM. [Suspect]
     Active Substance: HEPARIN SODIUM
     Dosage: UNK

REACTIONS (4)
  - Pulmonary embolism [Fatal]
  - Myocardial infarction [Fatal]
  - Cardiac arrest [Fatal]
  - Thrombosis [Fatal]

NARRATIVE: CASE EVENT DATE: 20210228
